FAERS Safety Report 9918987 (Version 1)
Quarter: 2014Q1

REPORT INFORMATION
  Report Type: Spontaneous
  Country: US (occurrence: US)
  Receive Date: 20140224
  Receipt Date: 20140224
  Transmission Date: 20141002
  Serious: No
  Sender: FDA-Public Use
  Company Number: US-BRISTOL-MYERS SQUIBB COMPANY-17385014

PATIENT
  Sex: Female

DRUGS (10)
  1. GLUCOPHAGE TABS 1000 MG [Suspect]
     Route: 048
  2. NORVASC [Concomitant]
     Indication: BLOOD PRESSURE
     Dosage: TAB
     Route: 048
  3. LIPITOR [Concomitant]
     Indication: BLOOD CHOLESTEROL
     Dosage: TAB,AT BED TIME
     Route: 048
  4. ESIDRIX [Concomitant]
     Dosage: EVERY MRNG,TAB
     Route: 048
  5. IBUPROFEN [Concomitant]
     Dosage: TAB,3/D
     Route: 048
  6. POTASSIUM CHLORIDE [Concomitant]
  7. MICRO-K [Concomitant]
     Dosage: POTASSIUM CHLORIDE 10MEQ SA CAP
     Route: 048
  8. ZOLOFT [Concomitant]
     Dosage: TAB
     Route: 048
  9. VITAMIN D [Concomitant]
     Dosage: 1DF=50000 UNIT CAP
     Route: 048
  10. ASPIRIN [Concomitant]
     Dosage: ASPIRIN EC TAB
     Route: 048

REACTIONS (1)
  - Diarrhoea [Unknown]
